FAERS Safety Report 6881762-0 (Version None)
Quarter: 2010Q3

REPORT INFORMATION
  Report Type: 
  Country: None (occurrence: None)
  Receive Date: 20100729
  Receipt Date: 20100715
  Transmission Date: 20110219
  Serious: Yes (Life-Threatening, Hospitalization)
  Sender: FDA-Public Use
  Company Number: ES-RANBAXY-2010RR-35093

PATIENT
  Age: 2 Month
  Sex: Female
  Weight: 4.7 kg

DRUGS (5)
  1. PARACETAMOL [Suspect]
     Indication: PYREXIA
     Dosage: 500 MG, UNK
     Route: 048
  2. ACETYLCYSTEINE [Suspect]
     Dosage: 150 MG/KG, UNK
     Route: 042
  3. ACETYLCYSTEINE [Suspect]
     Dosage: 50 MG/KG, UNK
  4. ACETYLCYSTEINE [Suspect]
     Dosage: 100 MG/KG, UNK
  5. DEXTROSE [Suspect]
     Dosage: 950 ML, UNK

REACTIONS (4)
  - ACCIDENTAL OVERDOSE [None]
  - DRUG TOXICITY [None]
  - GRAND MAL CONVULSION [None]
  - HYPONATRAEMIA [None]
